FAERS Safety Report 4650161-4 (Version None)
Quarter: 2005Q2

REPORT INFORMATION
  Report Type: 
  Country: None (occurrence: None)
  Receive Date: 20050502
  Receipt Date: 20050209
  Transmission Date: 20051028
  Serious: Yes (Death, Hospitalization)
  Sender: FDA-Public Use
  Company Number: PHBS2005CA02204

PATIENT
  Age: 72 Year
  Sex: Male

DRUGS (7)
  1. ZOMETA [Suspect]
     Indication: PROSTATE CANCER METASTATIC
     Dosage: 4 MG, ONCE/SINGLE
     Route: 042
     Dates: start: 20041007, end: 20041007
  2. PREDNISONE [Concomitant]
     Dosage: 10 MG, QD
     Dates: start: 20040826
  3. OXYCONTIN [Concomitant]
     Dates: start: 20040517
  4. COLACE [Concomitant]
     Dates: start: 20040517
  5. SENOKOT [Concomitant]
     Dates: start: 20040517
  6. ANDROCUR [Concomitant]
     Dates: start: 20031106
  7. TERAZOSIN HCL [Concomitant]
     Dates: start: 20040109

REACTIONS (7)
  - ABDOMINAL PAIN [None]
  - BONE PAIN [None]
  - DEATH [None]
  - DEHYDRATION [None]
  - MALIGNANT NEOPLASM PROGRESSION [None]
  - NAUSEA [None]
  - VOMITING [None]
